FAERS Safety Report 5170382-4 (Version None)
Quarter: 2006Q4

REPORT INFORMATION
  Report Type: 
  Country: None (occurrence: None)
  Receive Date: 20061204
  Receipt Date: 20061122
  Transmission Date: 20070319
  Serious: Yes (Other)
  Sender: FDA-Public Use
  Company Number: 2006130545

PATIENT
  Age: 37 Year
  Sex: Female

DRUGS (5)
  1. DEPO-PROVERA [Suspect]
     Indication: PREMENSTRUAL SYNDROME
     Dosage: 150 MG (150 MG, INJECTION ADMINISTERED), INTRAMUSCULAR
     Route: 030
     Dates: start: 20051001, end: 20051001
  2. DEPO-PROVERA [Suspect]
     Indication: UTERINE LEIOMYOMA
     Dosage: 150 MG (150 MG, INJECTION ADMINISTERED), INTRAMUSCULAR
     Route: 030
     Dates: start: 20051001, end: 20051001
  3. DEPO-PROVERA [Suspect]
     Indication: PREMENSTRUAL SYNDROME
     Dosage: 150 MG (150 MG, INJECTION ADMINISTERED), INTRAMUSCULAR
     Route: 030
     Dates: start: 20061101, end: 20061101
  4. DEPO-PROVERA [Suspect]
     Indication: UTERINE LEIOMYOMA
     Dosage: 150 MG (150 MG, INJECTION ADMINISTERED), INTRAMUSCULAR
     Route: 030
     Dates: start: 20061101, end: 20061101
  5. TAPAZOL (THIAMAZOLE) [Concomitant]

REACTIONS (17)
  - ABDOMINAL PAIN [None]
  - AMENORRHOEA [None]
  - DIARRHOEA [None]
  - DIZZINESS [None]
  - DRUG INEFFECTIVE [None]
  - DYSSTASIA [None]
  - FEELING HOT [None]
  - GASTROINTESTINAL DISORDER [None]
  - HEADACHE [None]
  - HELICOBACTER INFECTION [None]
  - MENSTRUATION IRREGULAR [None]
  - NAUSEA [None]
  - UTERINE LEIOMYOMA [None]
  - VAGINAL DISCHARGE [None]
  - VAGINAL HAEMORRHAGE [None]
  - VAGINAL ODOUR [None]
  - VOMITING [None]
